FAERS Safety Report 13873143 (Version 1)
Quarter: 2017Q3

REPORT INFORMATION
  Report Type: Report from Study
  Country: US (occurrence: US)
  Receive Date: 20170816
  Receipt Date: 20170816
  Transmission Date: 20171127
  Serious: Yes (Hospitalization, Other)
  Sender: FDA-Public Use
  Company Number: US-ROCHE-1972603

PATIENT
  Age: 49 Year
  Sex: Female
  Weight: 89.89 kg

DRUGS (2)
  1. AVASTIN [Suspect]
     Active Substance: BEVACIZUMAB
     Indication: MACULAR OEDEMA
  2. AVASTIN [Suspect]
     Active Substance: BEVACIZUMAB
     Indication: DIABETIC NEUROPATHY
     Dosage: IN LEFT EYE
     Route: 031
     Dates: start: 20170519

REACTIONS (15)
  - Off label use [Unknown]
  - Sepsis [Recovered/Resolved with Sequelae]
  - Fear [Not Recovered/Not Resolved]
  - Photophobia [Unknown]
  - Erythema [Recovered/Resolved with Sequelae]
  - Blindness [Recovered/Resolved with Sequelae]
  - Photopsia [Unknown]
  - Swelling face [Recovered/Resolved with Sequelae]
  - Intentional product use issue [Unknown]
  - Visual field defect [Recovered/Resolved with Sequelae]
  - Eye swelling [Recovered/Resolved with Sequelae]
  - Eye haemorrhage [Not Recovered/Not Resolved]
  - Intracranial pressure increased [Recovered/Resolved with Sequelae]
  - Visual field defect [Not Recovered/Not Resolved]
  - Infection [Recovered/Resolved with Sequelae]

NARRATIVE: CASE EVENT DATE: 20170519
